FAERS Safety Report 22221843 (Version 1)
Quarter: 2023Q2

REPORT INFORMATION
  Report Type: Spontaneous
  Country: CN (occurrence: CN)
  Receive Date: 20230418
  Receipt Date: 20230418
  Transmission Date: 20230721
  Serious: Yes (Hospitalization, Other)
  Sender: FDA-Public Use
  Company Number: None

PATIENT
  Age: 1 Year
  Sex: Male
  Weight: 10.4 kg

DRUGS (8)
  1. CYCLOPHOSPHAMIDE [Suspect]
     Active Substance: CYCLOPHOSPHAMIDE
     Indication: Neuroblastoma
     Dosage: 0.45 G, QD (DILUTED WITH (4:1) GLUCOSE SODIUM CHLORIDE 250 ML)
     Route: 041
     Dates: start: 20230316, end: 20230316
  2. DEXTROSE\SODIUM CHLORIDE [Suspect]
     Active Substance: DEXTROSE\SODIUM CHLORIDE
     Indication: Medication dilution
     Dosage: 250 ML, QD (4:1), DOSAGE FORM: INJECTION (USED TO DILUTE CYCLOPHOSPHAMIDE 0.45 G)
     Route: 041
     Dates: start: 20230316, end: 20230316
  3. SODIUM CHLORIDE [Suspect]
     Active Substance: SODIUM CHLORIDE
     Indication: Medication dilution
     Dosage: 50 ML, QD, STRENGTH: 0.9%, DOSAGE FORM: INJECTION (USED TO DILUTE VINDESINE SULFATE 1.1 MG)
     Route: 041
     Dates: start: 20230316, end: 20230316
  4. SODIUM CHLORIDE [Suspect]
     Active Substance: SODIUM CHLORIDE
     Dosage: 250 ML, QD, STRENGTH: 0.9%, DOSAGE FORM: INJECTION (USED TO DILUTE CISPLATIN 34 MG)
     Route: 041
     Dates: start: 20230317, end: 20230317
  5. SODIUM CHLORIDE [Suspect]
     Active Substance: SODIUM CHLORIDE
     Dosage: 250 ML, QD, STRENGTH: 0.9%, DOSAGE FORM: INJECTION (USED TO DILUTE ETOPOSIDE 0.06 G)
     Route: 041
     Dates: start: 20230318, end: 20230318
  6. ETOPOSIDE [Suspect]
     Active Substance: ETOPOSIDE
     Indication: Neuroblastoma
     Dosage: 0.06 G, QD (DILUTED WITH 0.9% SODIUM CHLORIDE 250 ML)
     Route: 041
     Dates: start: 20230318, end: 20230318
  7. VINDESINE SULFATE [Suspect]
     Active Substance: VINDESINE SULFATE
     Indication: Neuroblastoma
     Dosage: 1.1 MG, QD (DILUTED WITH 0.9% SODIUM CHLORIDE 50 ML)
     Route: 041
     Dates: start: 20230316, end: 20230316
  8. CISPLATIN [Suspect]
     Active Substance: CISPLATIN
     Indication: Neuroblastoma
     Dosage: 34 MG, QD, PUMP INJECTION (DILUTED WITH 0.9% SODIUM CHLORIDE 250 ML)
     Route: 041
     Dates: start: 20230317, end: 20230317

REACTIONS (1)
  - Myelosuppression [Recovering/Resolving]

NARRATIVE: CASE EVENT DATE: 20230324
